FAERS Safety Report 5788246-1 (Version None)
Quarter: 2008Q2

REPORT INFORMATION
  Report Type: 
  Country: None (occurrence: None)
  Receive Date: 20080625
  Receipt Date: 20080613
  Transmission Date: 20081010
  Serious: Yes (Disabling, Other)
  Sender: FDA-Public Use
  Company Number: GB-PFIZER INC-2008033757

PATIENT
  Sex: Male
  Weight: 112 kg

DRUGS (4)
  1. LYRICA [Suspect]
     Indication: NEUROPATHY PERIPHERAL
     Route: 048
     Dates: start: 20061106, end: 20080408
  2. TOLTERODINE TARTRATE [Concomitant]
  3. CO-DYDRAMOL [Concomitant]
  4. DICLOFENAC SODIUM [Concomitant]

REACTIONS (6)
  - CHOKING SENSATION [None]
  - DYSPNOEA [None]
  - FEAR [None]
  - HIP ARTHROPLASTY [None]
  - HYPERHIDROSIS [None]
  - PANIC DISORDER [None]
